FAERS Safety Report 6282625-4 (Version None)
Quarter: 2009Q3

REPORT INFORMATION
  Report Type: 
  Country: None (occurrence: None)
  Receive Date: 20090724
  Receipt Date: 20090714
  Transmission Date: 20100115
  Serious: Yes (Other)
  Sender: FDA-Public Use
  Company Number: PHEH2009US03645

PATIENT
  Age: 54 Year
  Sex: Male

DRUGS (4)
  1. DIOVAN HCT [Suspect]
     Dosage: 320/25 MG
  2. DIOVAN [Suspect]
     Indication: BLOOD PRESSURE
     Dosage: UNK
  3. NORVASC [Concomitant]
     Dosage: 5 MG, UNK
  4. WELCHOL [Concomitant]

REACTIONS (3)
  - HYPOAESTHESIA [None]
  - IMPAIRED DRIVING ABILITY [None]
  - NERVE INJURY [None]
